FAERS Safety Report 9439590 (Version 2)
Quarter: 2013Q3

REPORT INFORMATION
  Report Type: Spontaneous
  Country: CO (occurrence: CO)
  Receive Date: 20130805
  Receipt Date: 20130906
  Transmission Date: 20140515
  Serious: Yes (Death, Other)
  Sender: FDA-Public Use
  Company Number: CO-GE HEALTHCARE MEDICAL DIAGNOSTICS-OMPQ-PR-1307S-0966

PATIENT
  Age: 34 Year
  Sex: Female
  Weight: 107.14 kg

DRUGS (7)
  1. OMNIPAQUE [Suspect]
     Indication: CEREBROSPINAL FISTULA
     Route: 037
     Dates: start: 20130719, end: 20130719
  2. OMNIPAQUE [Suspect]
     Indication: DIAGNOSTIC PROCEDURE
  3. CEFTRIAXONE [Concomitant]
     Indication: MENINGITIS BACTERIAL
     Dosage: 2G/12HOURS
     Route: 042
     Dates: start: 20130702
  4. OMEPRAZOLE [Concomitant]
     Indication: PROPHYLAXIS
     Route: 048
     Dates: start: 20130702
  5. DICLOFENAC [Concomitant]
     Indication: HEADACHE
     Dosage: 75MG/12HOUR
     Route: 048
     Dates: start: 20130702
  6. TRAMADOL [Concomitant]
     Indication: HEADACHE
     Dosage: 50MG/12HOUR
     Route: 042
     Dates: start: 20130702
  7. ENOXAPARIN [Concomitant]
     Indication: PROPHYLAXIS
     Dosage: 40MG/24HOUR
     Route: 058
     Dates: start: 20130702

REACTIONS (4)
  - Death [Fatal]
  - Dysaesthesia [Unknown]
  - Headache [Unknown]
  - Convulsion [Unknown]
